FAERS Safety Report 8363229-6 (Version None)
Quarter: 2012Q2

REPORT INFORMATION
  Report Type: 
  Country: None (occurrence: None)
  Receive Date: 20120516
  Receipt Date: 20111128
  Transmission Date: 20120825
  Serious: No
  Sender: FDA-Public Use
  Company Number: US-ALEXION-A201101795

PATIENT
  Sex: Female
  Weight: 88.4 kg

DRUGS (6)
  1. MULTI-VITAMIN [Concomitant]
     Dosage: UNK
  2. ZOLPIDEM [Concomitant]
     Indication: INSOMNIA
     Dosage: UNK, H.S. PRN
  3. SOLIRIS [Suspect]
     Indication: PAROXYSMAL NOCTURNAL HAEMOGLOBINURIA
     Dosage: UNK
     Route: 042
     Dates: start: 20110218
  4. WARFARIN SODIUM [Concomitant]
     Dosage: 5 MG, 3 DAYS/WEEK
  5. WARFARIN SODIUM [Concomitant]
     Dosage: 7.5 MG, 4 DAYS/WEEK
  6. FOLTX [Concomitant]
     Dosage: UNK

REACTIONS (7)
  - OEDEMA PERIPHERAL [None]
  - SINUS TARSI SYNDROME [None]
  - HAEMATOMA [None]
  - HAEMOGLOBIN ABNORMAL [None]
  - PLATELET COUNT DECREASED [None]
  - MUSCLE SPASMS [None]
  - LIGAMENT SPRAIN [None]
